FAERS Safety Report 8734167 (Version 2)
Quarter: 2012Q4

REPORT INFORMATION
  Report Type: Spontaneous
  Country: US (occurrence: None)
  Receive Date: 20120802
  Receipt Date: 20120905
  Transmission Date: 20130627
  Serious: No
  Sender: FDA-Public Use
  Company Number: SPI201200171

PATIENT
  Age: 55 Year
  Sex: Female
  Weight: 160 kg

DRUGS (1)
  1. AMITIZA [Suspect]
     Indication: CHRONIC IDIOPATHIC CONSTIPATION
     Route: 048
     Dates: start: 20120611

REACTIONS (1)
  - Dyspnoea [None]
